FAERS Safety Report 26151333 (Version 1)
Quarter: 2025Q4

REPORT INFORMATION
  Report Type: Spontaneous
  Country: US (occurrence: US)
  Receive Date: 20251212
  Receipt Date: 20251212
  Transmission Date: 20260117
  Serious: No
  Sender: MALLINCKRODT
  Company Number: US-MALLINCKRODT-MNK202507768

PATIENT
  Sex: Male

DRUGS (1)
  1. CORTICOTROPIN [Suspect]
     Active Substance: CORTICOTROPIN
     Indication: Product used for unknown indication
     Dosage: 80 UNITS
     Route: 058

REACTIONS (5)
  - Vomiting [Unknown]
  - Asthenia [Unknown]
  - Fatigue [Unknown]
  - Insomnia [Unknown]
  - Decreased appetite [Unknown]
